FAERS Safety Report 23824872 (Version 1)
Quarter: 2024Q2

REPORT INFORMATION
  Report Type: Other
  Country: FR (occurrence: FR)
  Receive Date: 20240507
  Receipt Date: 20240507
  Transmission Date: 20240715
  Serious: Yes (Death, Other)
  Sender: FDA-Public Use
  Company Number: FR-CHEPLA-2023015906

PATIENT

DRUGS (5)
  1. TRASTUZUMAB [Suspect]
     Active Substance: TRASTUZUMAB
     Indication: Product used for unknown indication
     Dosage: UNK
     Route: 042
     Dates: start: 202111
  2. CAPECITABINE [Suspect]
     Active Substance: CAPECITABINE
     Indication: Breast cancer
     Dosage: UNK
     Route: 048
     Dates: start: 202111
  3. TUCATINIB [Suspect]
     Active Substance: TUCATINIB
     Indication: Product used for unknown indication
     Dosage: UNK
     Route: 048
     Dates: start: 202111
  4. PACLITAXEL [Concomitant]
     Active Substance: PACLITAXEL
     Indication: Product used for unknown indication
     Route: 065
     Dates: start: 202012
  5. PERTUZUMAB [Concomitant]
     Active Substance: PERTUZUMAB
     Indication: Product used for unknown indication
     Route: 065
     Dates: start: 202012

REACTIONS (10)
  - Glossopharyngeal nerve paralysis [Fatal]
  - Hyperproteinaemia [Fatal]
  - Diplopia [Fatal]
  - Epilepsy [Fatal]
  - Neurological decompensation [Fatal]
  - Dysarthria [Fatal]
  - Paraesthesia [Fatal]
  - Fall [Fatal]
  - Hypoglycaemia [Fatal]
  - Haematoma [Fatal]

NARRATIVE: CASE EVENT DATE: 20221201
